FAERS Safety Report 6852321-0 (Version None)
Quarter: 2010Q3

REPORT INFORMATION
  Report Type: 
  Country: None (occurrence: None)
  Receive Date: 20100717
  Receipt Date: 20071108
  Transmission Date: 20110219
  Serious: No
  Sender: FDA-Public Use
  Company Number: US-PFIZER INC-2007096578

PATIENT
  Sex: Female
  Weight: 71.2 kg

DRUGS (10)
  1. CHANTIX [Suspect]
     Indication: SMOKING CESSATION THERAPY
     Route: 048
     Dates: start: 20071001
  2. WELLBUTRIN [Concomitant]
  3. BUSPAR [Concomitant]
  4. VERAPAMIL [Concomitant]
  5. LOTENSIN [Concomitant]
  6. VITAMIN B [Concomitant]
  7. VITAMIN C [Concomitant]
  8. VITAMIN E [Concomitant]
  9. LOVAZA [Concomitant]
  10. METHYLSULFONYLMETHANE [Concomitant]

REACTIONS (5)
  - BACK PAIN [None]
  - FATIGUE [None]
  - MIDDLE INSOMNIA [None]
  - MYALGIA [None]
  - PAIN IN EXTREMITY [None]
